FAERS Safety Report 24335429 (Version 1)
Quarter: 2024Q3

REPORT INFORMATION
  Report Type: Report from Study
  Country: US (occurrence: US)
  Receive Date: 20240919
  Receipt Date: 20240919
  Transmission Date: 20241016
  Serious: Yes (Hospitalization, Other)
  Sender: JOHNSON AND JOHNSON
  Company Number: US-JNJFOC-20240935314

PATIENT
  Age: 6 Decade
  Sex: Male

DRUGS (5)
  1. SPRAVATO [Suspect]
     Active Substance: ESKETAMINE
     Indication: Depression
     Dosage: ^56 MG, 18 TOTAL DOSES^
     Dates: start: 20210608, end: 20210921
  2. SPRAVATO [Suspect]
     Active Substance: ESKETAMINE
     Dosage: ^28 MG, 3 TOTAL DOSES^
     Dates: start: 20210928, end: 20211012
  3. SPRAVATO [Suspect]
     Active Substance: ESKETAMINE
     Dosage: ^56 MG, 37 TOTAL DOSES^
     Dates: start: 20211019, end: 20230222
  4. SPRAVATO [Suspect]
     Active Substance: ESKETAMINE
     Dosage: ^84 MG, 1 TOTAL DOSE^
     Dates: start: 20230419, end: 20230419
  5. SPRAVATO [Suspect]
     Active Substance: ESKETAMINE
     Dosage: ^56 MG, 17 TOTAL DOSES^
     Dates: start: 20230425, end: 20240312

REACTIONS (1)
  - Orthopaedic procedure [Unknown]
